FAERS Safety Report 9713847 (Version 1)
Quarter: 2013Q4

REPORT INFORMATION
  Report Type: Spontaneous
  Country: US (occurrence: US)
  Receive Date: 20131126
  Receipt Date: 20131126
  Transmission Date: 20140711
  Serious: Yes (Hospitalization)
  Sender: FDA-Public Use
  Company Number: US-GLAXOSMITHKLINE-A1051058A

PATIENT
  Age: 70 Year
  Sex: Female

DRUGS (2)
  1. ADVAIR [Suspect]
     Indication: CHRONIC OBSTRUCTIVE PULMONARY DISEASE
     Dosage: 1PUFF TWICE PER DAY
     Route: 055
  2. SPIRIVA [Concomitant]

REACTIONS (4)
  - Large intestine perforation [Not Recovered/Not Resolved]
  - Colon cancer [Not Recovered/Not Resolved]
  - Colectomy [Not Recovered/Not Resolved]
  - Off label use [Not Recovered/Not Resolved]
